FAERS Safety Report 4941007-5 (Version None)
Quarter: 2006Q1

REPORT INFORMATION
  Report Type: 
  Country: None (occurrence: None)
  Receive Date: 20060313
  Receipt Date: 20060228
  Transmission Date: 20060701
  Serious: Yes (Other)
  Sender: FDA-Public Use
  Company Number: PHBS2006JP03336

PATIENT
  Age: 33 Year
  Sex: Male

DRUGS (3)
  1. NEORAL [Suspect]
     Indication: NEPHROTIC SYNDROME
     Dosage: 100 MG/D
     Route: 048
     Dates: start: 19990101
  2. PREDONINE [Concomitant]
     Indication: NEPHROTIC SYNDROME
     Dosage: 30 MG/D
     Route: 048
     Dates: start: 19990101
  3. INSULIN [Concomitant]
     Route: 042

REACTIONS (5)
  - ANAEMIA [None]
  - GASTROINTESTINAL HAEMORRHAGE [None]
  - HAEMOGLOBIN DECREASED [None]
  - HYPOTENSION [None]
  - NEPHROPATHY [None]
